FAERS Safety Report 5345832-0 (Version None)
Quarter: 2007Q2

REPORT INFORMATION
  Report Type: 
  Country: None (occurrence: None)
  Receive Date: 20070430
  Receipt Date: 20070227
  Transmission Date: 20071010
  Serious: No
  Sender: FDA-Public Use
  Company Number: 261176

PATIENT
  Age: 58 Year
  Sex: Male
  Weight: 90.7 kg

DRUGS (2)
  1. LEVEMIR [Suspect]
     Indication: INSULIN-REQUIRING TYPE II DIABETES MELLITUS
     Dosage: 25 IU, QD, SUBCUTANEOUS
     Route: 058
  2. COREG [Concomitant]

REACTIONS (1)
  - BLOOD GLUCOSE INCREASED [None]
